FAERS Safety Report 22090611 (Version 2)
Quarter: 2024Q1

REPORT INFORMATION
  Report Type: Spontaneous
  Country: JP (occurrence: JP)
  Receive Date: 20230313
  Receipt Date: 20240223
  Transmission Date: 20240410
  Serious: Yes (Death, Other)
  Sender: FDA-Public Use
  Company Number: JP-TAKEDA-2023TJP003230

PATIENT

DRUGS (4)
  1. ADCETRIS [Suspect]
     Active Substance: BRENTUXIMAB VEDOTIN
     Indication: Adult T-cell lymphoma/leukaemia
     Dosage: 1.8 MILLIGRAM/KILOGRAM, Q3WEEKS
     Route: 041
  2. CYCLOPHOSPHAMIDE [Suspect]
     Active Substance: CYCLOPHOSPHAMIDE
     Indication: Adult T-cell lymphoma/leukaemia
     Dosage: UNK UNK, Q3WEEKS
     Route: 042
  3. DOXORUBICIN HYDROCHLORIDE [Suspect]
     Active Substance: DOXORUBICIN HYDROCHLORIDE
     Indication: Adult T-cell lymphoma/leukaemia
     Dosage: UNK UNK, Q3WEEKS
     Route: 042
  4. PREDNISOLONE [Suspect]
     Active Substance: PREDNISOLONE
     Indication: Adult T-cell lymphoma/leukaemia
     Dosage: UNK UNK, Q3WEEKS
     Route: 041

REACTIONS (1)
  - Adult T-cell lymphoma/leukaemia [Fatal]
